FAERS Safety Report 19961368 (Version 1)
Quarter: 2021Q4

REPORT INFORMATION
  Report Type: Other
  Country: IT (occurrence: IT)
  Receive Date: 20211017
  Receipt Date: 20211017
  Transmission Date: 20220303
  Serious: Yes (Other)
  Sender: FDA-Public Use
  Company Number: IT-ROCHE-2934915

PATIENT
  Age: 75 Year
  Sex: Male

DRUGS (2)
  1. DIAZEPAM [Suspect]
     Active Substance: DIAZEPAM
     Indication: Dementia
     Route: 065
  2. BIPERIDEN [Suspect]
     Active Substance: BIPERIDEN
     Indication: Dementia
     Route: 065

REACTIONS (3)
  - Delirium [Unknown]
  - Drug interaction [Unknown]
  - Wrong product administered [Unknown]
